FAERS Safety Report 7114297-0 (Version None)
Quarter: 2010Q4

REPORT INFORMATION
  Report Type: 
  Country: None (occurrence: None)
  Receive Date: 20101119
  Receipt Date: 20101109
  Transmission Date: 20110411
  Serious: Yes (Other)
  Sender: FDA-Public Use
  Company Number: US-PFIZER INC-2010148383

PATIENT
  Age: 3 Year
  Sex: Female

DRUGS (1)
  1. DIMETAPP DM COLD AND COUGH [Suspect]
     Dosage: UNK
     Route: 048

REACTIONS (1)
  - ACCIDENTAL OVERDOSE [None]
